FAERS Safety Report 4560287-1 (Version None)
Quarter: 2005Q1

REPORT INFORMATION
  Report Type: 
  Country: None (occurrence: None)
  Receive Date: 20050120
  Receipt Date: 20050120
  Transmission Date: 20050727
  Serious: No
  Sender: FDA-Public Use
  Company Number: None

PATIENT

DRUGS (1)
  1. PIPERACILLIN/TAZOBACTAM [Suspect]
     Dosage: 4/05 GM IV X 1
     Route: 042

REACTIONS (3)
  - ERYTHEMA [None]
  - HYPERTENSION [None]
  - TACHYCARDIA [None]
